FAERS Safety Report 4878562-X (Version None)
Quarter: 2005Q4

REPORT INFORMATION
  Report Type: 
  Country: None (occurrence: None)
  Receive Date: 20051209
  Receipt Date: 20050429
  Transmission Date: 20060501
  Serious: Yes (Life-Threatening, Disabling, Other)
  Sender: FDA-Public Use
  Company Number: USA-2005-0020094

PATIENT
  Age: 49 Year
  Sex: Male
  Weight: 90.7 kg

DRUGS (1)
  1. OXYCONTIN [Suspect]
     Indication: PAIN
     Dosage: 10 MG TID
     Dates: start: 19990706, end: 20000808

REACTIONS (11)
  - ANXIETY [None]
  - DEPRESSION [None]
  - DRUG DEPENDENCE [None]
  - DRUG WITHDRAWAL SYNDROME [None]
  - EMOTIONAL DISTRESS [None]
  - FEAR [None]
  - INJURY [None]
  - MENTAL DISORDER [None]
  - PAIN [None]
  - PERSONALITY CHANGE [None]
  - THINKING ABNORMAL [None]
